FAERS Safety Report 12684147 (Version 2)
Quarter: 2016Q4

REPORT INFORMATION
  Report Type: Report from Study
  Country: US (occurrence: US)
  Receive Date: 20160825
  Receipt Date: 20161007
  Transmission Date: 20170207
  Serious: Yes (Other)
  Sender: FDA-Public Use
  Company Number: US-BAYER-2016-161775

PATIENT
  Age: 69 Year
  Sex: Male
  Weight: 134 kg

DRUGS (23)
  1. HYDROCODONE BITARTRATE AND ACETAMINOPHEN [Concomitant]
     Active Substance: ACETAMINOPHEN\HYDROCODONE BITARTRATE
  2. NEXAVAR [Suspect]
     Active Substance: SORAFENIB
     Indication: HEPATOCELLULAR CARCINOMA
     Dosage: 400 MG, BID
     Route: 048
     Dates: start: 20160722, end: 2016
  3. ACTOS [Concomitant]
     Active Substance: PIOGLITAZONE HYDROCHLORIDE
  4. DILTIAZEM ER [Concomitant]
     Active Substance: DILTIAZEM
  5. NOVOLOG [Concomitant]
     Active Substance: INSULIN ASPART
  6. PIOGLITAZONE. [Concomitant]
     Active Substance: PIOGLITAZONE
  7. CLOBETASOL [Concomitant]
     Active Substance: CLOBETASOL
  8. GLUCOSAMINE W/CHONDROITIN SULFATE [Concomitant]
     Active Substance: CHONDROITIN SULFATE (BOVINE)\GLUCOSAMINE SULFATE
  9. CELEXA [Concomitant]
     Active Substance: CITALOPRAM HYDROBROMIDE
  10. NEXAVAR [Suspect]
     Active Substance: SORAFENIB
     Indication: HEPATOCELLULAR CARCINOMA
     Dosage: 400 MG, BID
     Route: 048
     Dates: start: 20141113
  11. LANTUS [Concomitant]
     Active Substance: INSULIN GLARGINE
  12. MAGNESIUM OXIDE. [Concomitant]
     Active Substance: MAGNESIUM OXIDE
  13. ZOFRAN [Concomitant]
     Active Substance: ONDANSETRON HYDROCHLORIDE
  14. NEXAVAR [Suspect]
     Active Substance: SORAFENIB
     Indication: HEPATOCELLULAR CARCINOMA
     Dosage: 200 MG, QD
     Route: 048
     Dates: start: 201609
  15. MINOCYCLINE [Concomitant]
     Active Substance: MINOCYCLINE\MINOCYCLINE HYDROCHLORIDE
  16. PRILOSEC [Concomitant]
     Active Substance: OMEPRAZOLE MAGNESIUM
  17. VITAMIN D3 [Concomitant]
     Active Substance: CHOLECALCIFEROL
  18. TAMSULOSIN [Concomitant]
     Active Substance: TAMSULOSIN
  19. ASPIRIN. [Concomitant]
     Active Substance: ASPIRIN
  20. METOPROLOL. [Concomitant]
     Active Substance: METOPROLOL
  21. NORCO [Concomitant]
     Active Substance: ACETAMINOPHEN\HYDROCODONE BITARTRATE
  22. FEBUXOSTAT. [Concomitant]
     Active Substance: FEBUXOSTAT
  23. CARDIZEM [Concomitant]
     Active Substance: DILTIAZEM HYDROCHLORIDE

REACTIONS (7)
  - Gait disturbance [None]
  - Gait disturbance [Unknown]
  - Rash [None]
  - Limb discomfort [None]
  - Blister [Unknown]
  - Palmar-plantar erythrodysaesthesia syndrome [None]
  - Pain in extremity [Unknown]
